FAERS Safety Report 6590988-5 (Version None)
Quarter: 2010Q1

REPORT INFORMATION
  Report Type: 
  Country: None (occurrence: None)
  Receive Date: 20100219
  Receipt Date: 20100209
  Transmission Date: 20100710
  Serious: Yes (Hospitalization)
  Sender: FDA-Public Use
  Company Number: US-ELI_LILLY_AND_COMPANY-US201001001994

PATIENT
  Sex: Male
  Weight: 102.4 kg

DRUGS (20)
  1. BYETTA [Suspect]
     Indication: TYPE 2 DIABETES MELLITUS
     Dosage: 5 UG, 2/D
     Route: 058
     Dates: start: 20060428
  2. BYETTA [Suspect]
     Dosage: 10 UG, 2/D
     Route: 058
     Dates: start: 20060101, end: 20091101
  3. LAMICTAL [Concomitant]
     Indication: BIPOLAR DISORDER
     Dosage: 150 MG, DAILY (1/D)
     Route: 048
  4. LIPITOR [Concomitant]
     Indication: BLOOD CHOLESTEROL
     Dosage: 40 MG, DAILY (1/D)
  5. SPIRIVA [Concomitant]
     Indication: CHRONIC OBSTRUCTIVE PULMONARY DISEASE
     Dosage: 18 MG, UNK
     Route: 055
  6. LOVAZA [Concomitant]
     Indication: BLOOD GLUCOSE ABNORMAL
     Dosage: 1 MG, UNK
  7. ALLEGRA [Concomitant]
     Dosage: 180 MG, DAILY (1/D)
     Route: 048
  8. NEXIUM [Concomitant]
     Dosage: 40 MG, DAILY (1/D)
     Route: 048
  9. CLONAZEPAM [Concomitant]
     Indication: BIPOLAR DISORDER
     Dosage: 1 MG, UNK
  10. ZOLPIDEM [Concomitant]
     Dosage: 10 MG, DAILY (1/D)
  11. TUSSIONEX [Concomitant]
     Indication: COUGH
     Dosage: UNK, AS NEEDED
  12. BENZONATATE [Concomitant]
     Indication: COUGH
     Dosage: 100 MG, UNK
  13. HUMALOG [Concomitant]
     Indication: DIABETES MELLITUS
  14. ADVAIR DISKUS 100/50 [Concomitant]
     Indication: COUGH
  15. ANTARA (MICRONIZED) [Concomitant]
     Dosage: 43 MG, UNK
  16. PROVENTIL                               /USA/ [Concomitant]
     Indication: COUGH
     Dosage: 2 MG, UNK
     Route: 055
  17. BELLADONNA ALKALOIDS [Concomitant]
     Dosage: UNK, AS NEEDED
  18. LAXATIVES [Concomitant]
     Dosage: 2 D/F, UNK
  19. BIFIDOBACTERIUM BIFIDUM [Concomitant]
  20. WELLBUTRIN [Concomitant]
     Indication: BIPOLAR DISORDER
     Dosage: 300 MG, DAILY (1/D)
     Route: 048

REACTIONS (7)
  - BLOOD GLUCOSE INCREASED [None]
  - CONSTIPATION [None]
  - DEHYDRATION [None]
  - OFF LABEL USE [None]
  - ORCHITIS [None]
  - RENAL FUNCTION TEST ABNORMAL [None]
  - VOMITING [None]
